FAERS Safety Report 8286332-8 (Version None)
Quarter: 2012Q2

REPORT INFORMATION
  Report Type: 
  Country: None (occurrence: None)
  Receive Date: 20120416
  Receipt Date: 20120409
  Transmission Date: 20120825
  Serious: Yes (Other)
  Sender: FDA-Public Use
  Company Number: US-TEVA-332790USA

PATIENT
  Age: 68 Year
  Sex: Male

DRUGS (3)
  1. MYCOPHENOLIC ACID [Suspect]
     Indication: IMMUNOSUPPRESSION
     Route: 065
  2. PREDNISONE [Suspect]
     Indication: IMMUNOSUPPRESSION
     Dosage: 5 MG/DAY
     Route: 065
  3. TACROLIMUS [Suspect]
     Indication: IMMUNOSUPPRESSION
     Route: 065

REACTIONS (11)
  - PYREXIA [None]
  - HEADACHE [None]
  - PARAPLEGIA [None]
  - RADICULOPATHY [None]
  - ASTHENIA [None]
  - GUILLAIN-BARRE SYNDROME [None]
  - CONFUSIONAL STATE [None]
  - LETHARGY [None]
  - CHILLS [None]
  - ENCEPHALITIS VIRAL [None]
  - FLANK PAIN [None]
